FAERS Safety Report 16724463 (Version 1)
Quarter: 2019Q3

REPORT INFORMATION
  Report Type: Spontaneous
  Country: FR (occurrence: FR)
  Receive Date: 20190821
  Receipt Date: 20190821
  Transmission Date: 20191005
  Serious: Yes (Other)
  Sender: FDA-Public Use
  Company Number: FR-PFIZER INC-2019355775

PATIENT
  Age: 1 Year
  Sex: Male
  Weight: 10 kg

DRUGS (11)
  1. FUNGIZONE [Concomitant]
     Active Substance: AMPHOTERICIN B
     Dosage: 170 MG, 3X/DAY (EVERY 8 HOURS)
     Route: 048
  2. MORPHINE [Concomitant]
     Active Substance: MORPHINE
     Indication: PAIN
     Dosage: UNK
     Route: 042
     Dates: start: 20190710
  3. GLUCIDION G 5 [Concomitant]
     Dosage: UNK
     Route: 042
     Dates: start: 20190710
  4. DALACINE [Suspect]
     Active Substance: CLINDAMYCIN
     Indication: MASTOIDITIS
     Dosage: 420 MG, DAILY
     Route: 042
     Dates: start: 20190715
  5. ECONAZOLE NITRATE. [Concomitant]
     Active Substance: ECONAZOLE NITRATE
     Dosage: UNK
     Route: 003
     Dates: start: 20190718
  6. LEVETIRACETAM. [Concomitant]
     Active Substance: LEVETIRACETAM
     Dosage: 300 MG, DAILY
     Dates: start: 20190712
  7. PARACETAMOL [Concomitant]
     Active Substance: ACETAMINOPHEN
     Indication: PAIN
     Dosage: 150 MG, 4X/DAY (EVERY 6 HOURS)
     Route: 042
     Dates: start: 20190710
  8. SOLUPRED [Concomitant]
     Dosage: UNK
     Route: 048
     Dates: start: 20190720
  9. OFLOCET [Concomitant]
     Active Substance: OFLOXACIN
     Indication: MASTOIDITIS
     Dosage: 6 DF, DAILY
     Route: 001
     Dates: start: 20190718
  10. INNOHEP [Concomitant]
     Active Substance: TINZAPARIN SODIUM
     Indication: CEREBROVASCULAR ACCIDENT
     Dosage: 2400 IU, DAILY
     Route: 058
     Dates: start: 20190710
  11. AMOXICILLIN TRIHYDRATE [Concomitant]
     Active Substance: AMOXICILLIN
     Indication: MASTOIDITIS
     Dosage: 3120 MG, DAILY
     Route: 042
     Dates: start: 20190714

REACTIONS (3)
  - Ventricular extrasystoles [Recovered/Resolved]
  - Product administered to patient of inappropriate age [Unknown]
  - Off label use [Unknown]

NARRATIVE: CASE EVENT DATE: 20190715
